FAERS Safety Report 19589443 (Version 1)
Quarter: 2021Q3

REPORT INFORMATION
  Report Type: Spontaneous
  Country: US (occurrence: US)
  Receive Date: 20210721
  Receipt Date: 20210721
  Transmission Date: 20211014
  Serious: No
  Sender: FDA-Public Use
  Company Number: US-VERTEX PHARMACEUTICALS-2021-010715

PATIENT
  Age: 60 Year
  Sex: Male

DRUGS (1)
  1. TRIKAFTA [Suspect]
     Active Substance: ELEXACAFTOR\IVACAFTOR\TEZACAFTOR
     Indication: CYSTIC FIBROSIS
     Dosage: UNK
     Route: 048
     Dates: start: 2020

REACTIONS (4)
  - Scoliosis [Not Recovered/Not Resolved]
  - Back disorder [Not Recovered/Not Resolved]
  - Joint stiffness [Unknown]
  - Arthralgia [Unknown]
